FAERS Safety Report 5023927-9 (Version None)
Quarter: 2006Q2

REPORT INFORMATION
  Report Type: 
  Country: None (occurrence: None)
  Receive Date: 20060426
  Receipt Date: 20060222
  Transmission Date: 20061013
  Serious: Yes (Other)
  Sender: FDA-Public Use
  Company Number: 2006027119

PATIENT
  Age: 55 Year
  Sex: Female

DRUGS (3)
  1. LYRICA [Suspect]
     Indication: ILL-DEFINED DISORDER
  2. DARVOCET [Concomitant]
  3. VICODIN [Concomitant]

REACTIONS (3)
  - DYSPNOEA [None]
  - SOMNOLENCE [None]
  - TREMOR [None]
